FAERS Safety Report 8365597-8 (Version None)
Quarter: 2012Q2

REPORT INFORMATION
  Report Type: 
  Country: None (occurrence: None)
  Receive Date: 20120516
  Receipt Date: 20120509
  Transmission Date: 20120825
  Serious: Yes (Death)
  Sender: FDA-Public Use
  Company Number: JP-MERCK-1204USA04280

PATIENT
  Age: 83 Year
  Sex: Male

DRUGS (7)
  1. MUCOTRON [Concomitant]
     Dosage: DAILY DOSAGE UNKNOWN
     Route: 048
  2. MIRTAZAPINE [Concomitant]
     Dosage: DAILY DOSAGE UNKNOWN
     Route: 048
  3. JANUVIA [Suspect]
     Indication: DIABETES MELLITUS
     Route: 048
     Dates: start: 20101101, end: 20120416
  4. PRAVASTATIN SODIUM [Suspect]
     Indication: DYSLIPIDAEMIA
     Route: 048
  5. CANDESARTAN CILEXETIL [Suspect]
     Indication: HYPERTENSION
     Dosage: DAILY DOSAGE UNKNOWN
     Route: 048
  6. UNIPHYL LA [Concomitant]
     Dosage: DAILY DOSAGE UNKNOWN
     Route: 048
  7. MUCOBULIN [Concomitant]
     Route: 048

REACTIONS (5)
  - HYPOGLYCAEMIC COMA [None]
  - METABOLIC ACIDOSIS [None]
  - RHABDOMYOLYSIS [None]
  - INTESTINAL OBSTRUCTION [None]
  - RENAL FAILURE [None]
